FAERS Safety Report 7215241-8 (Version None)
Quarter: 2011Q1

REPORT INFORMATION
  Report Type: 
  Country: None (occurrence: None)
  Receive Date: 20110107
  Receipt Date: 20101228
  Transmission Date: 20110831
  Serious: Yes (Other)
  Sender: FDA-Public Use
  Company Number: PHEH2010US03362

PATIENT
  Age: 27 Year
  Sex: Female
  Weight: 85 kg

DRUGS (1)
  1. TASIGNA [Suspect]
     Indication: CHRONIC MYELOID LEUKAEMIA
     Dosage: 200 MG, UNK
     Route: 048
     Dates: start: 20090420, end: 20100306

REACTIONS (4)
  - CAESAREAN SECTION [None]
  - BONE MARROW FAILURE [None]
  - DRUG EXPOSURE DURING PREGNANCY [None]
  - FEMALE STERILISATION [None]
